FAERS Safety Report 23379575 (Version 1)
Quarter: 2024Q1

REPORT INFORMATION
  Report Type: Report from Study
  Country: US (occurrence: US)
  Receive Date: 20240108
  Receipt Date: 20240108
  Transmission Date: 20240409
  Serious: Yes (Other)
  Sender: FDA-Public Use
  Company Number: US-VERTEX PHARMACEUTICALS-2022-011473

PATIENT
  Age: 3 Year
  Sex: Female

DRUGS (2)
  1. ORKAMBI [Suspect]
     Active Substance: IVACAFTOR\LUMACAFTOR
     Indication: Cystic fibrosis
     Dosage: UNK
     Route: 048
     Dates: start: 20210701, end: 20220210
  2. ORKAMBI [Suspect]
     Active Substance: IVACAFTOR\LUMACAFTOR
     Dosage: 1 PACKET GRANULES (100MG/ 125MG), BID (RESTARTED ON 22-JUL-2022)
     Route: 048
     Dates: start: 20220716, end: 20230730

REACTIONS (2)
  - Idiopathic intracranial hypertension [Unknown]
  - Papilloedema [Recovering/Resolving]

NARRATIVE: CASE EVENT DATE: 20211224
